FAERS Safety Report 17952357 (Version 1)
Quarter: 2020Q2

REPORT INFORMATION
  Report Type: Spontaneous
  Country: US (occurrence: US)
  Receive Date: 20200626
  Receipt Date: 20200626
  Transmission Date: 20200714
  Serious: No
  Sender: FDA-Public Use
  Company Number: US-PFIZER INC-2020246520

PATIENT
  Age: 76 Year
  Sex: Female
  Weight: 78.93 kg

DRUGS (1)
  1. XELJANZ XR [Suspect]
     Active Substance: TOFACITINIB CITRATE
     Indication: RHEUMATOID ARTHRITIS
     Dosage: 11 MG, 1X/DAY
     Route: 048
     Dates: start: 202004, end: 20200621

REACTIONS (4)
  - Infection [Not Recovered/Not Resolved]
  - Fall [Recovering/Resolving]
  - Therapeutic product effect incomplete [Unknown]
  - Skin atrophy [Recovering/Resolving]

NARRATIVE: CASE EVENT DATE: 2020
